FAERS Safety Report 25526251 (Version 4)
Quarter: 2025Q4

REPORT INFORMATION
  Report Type: Spontaneous
  Country: JP (occurrence: JP)
  Receive Date: 20250707
  Receipt Date: 20251030
  Transmission Date: 20260118
  Serious: Yes (Other)
  Sender: PFIZER
  Company Number: JP-PFIZER INC-PV202500078729

PATIENT
  Age: 32 Year
  Sex: Male

DRUGS (1)
  1. LORBRENA [Suspect]
     Active Substance: LORLATINIB
     Indication: Lung neoplasm malignant
     Dosage: UNK
     Dates: start: 202506

REACTIONS (4)
  - Altered state of consciousness [Recovered/Resolved]
  - Feeling abnormal [Recovered/Resolved]
  - Dyslipidaemia [Unknown]
  - Feeling abnormal [Recovered/Resolved]
